FAERS Safety Report 18418355 (Version 15)
Quarter: 2021Q3

REPORT INFORMATION
  Report Type: Spontaneous
  Country: US (occurrence: US)
  Receive Date: 20201023
  Receipt Date: 20210924
  Transmission Date: 20211014
  Serious: No
  Sender: FDA-Public Use
  Company Number: US-SA-2020SA299015

PATIENT
  Age: 46 Year
  Sex: Male

DRUGS (2)
  1. CABLIVI [Suspect]
     Active Substance: CAPLACIZUMAB-YHDP
     Indication: THROMBOTIC MICROANGIOPATHY
     Dosage: 11 MG, QD
     Route: 058
     Dates: start: 20201008
  2. CABLIVI [Suspect]
     Active Substance: CAPLACIZUMAB-YHDP
     Indication: IMMUNE THROMBOCYTOPENIA

REACTIONS (11)
  - Rash [Recovering/Resolving]
  - Injection site pain [Unknown]
  - Haematocrit abnormal [Unknown]
  - Aphasia [Recovering/Resolving]
  - Haemoglobin abnormal [Unknown]
  - Blood creatinine increased [Unknown]
  - Product dose omission issue [Unknown]
  - Off label use [Unknown]
  - ADAMTS13 activity decreased [Not Recovered/Not Resolved]
  - Platelet count decreased [Unknown]
  - Blood urea abnormal [Unknown]

NARRATIVE: CASE EVENT DATE: 2020
